FAERS Safety Report 8342886 (Version 2)
Quarter: 2013Q2

REPORT INFORMATION
  Report Type: Spontaneous
  Country: US (occurrence: None)
  Receive Date: 20111202
  Receipt Date: 20121203
  Transmission Date: 20140414
  Serious: Yes (Hospitalization, Other)
  Sender: FDA-Public Use
  Company Number: 2011SP043796

PATIENT
  Age: 29 Year
  Sex: Female
  Weight: 86.2 kg

DRUGS (2)
  1. NUVARING (ETONOGESTREL (+) ETHINYL ESTRADIOL) VAGINAL RING [Suspect]
     Indication: CONTRACEPTION
     Dates: start: 20060625, end: 20091002
  2. NUVARING (ETONOGESTREL (+) ETHINYL ESTRADIOL) VAGINAL RING [Suspect]
     Indication: MENSTRUAL CYCLE MANAGEMENT
     Dates: start: 20060625, end: 20091002

REACTIONS (18)
  - DEEP VEIN THROMBOSIS [None]
  - Pulmonary embolism [None]
  - Migraine [None]
  - Cyst [None]
  - Keratomileusis [None]
  - Arthropathy [None]
  - Ovarian cyst [None]
  - Ligament sprain [None]
  - Limb discomfort [None]
  - Vision blurred [None]
  - Conjunctivitis [None]
  - Muscle spasms [None]
  - Micturition urgency [None]
  - Depression [None]
  - Weight increased [None]
  - Amenorrhoea [None]
  - Vaginal infection [None]
  - Headache [None]
